FAERS Safety Report 17087197 (Version 1)
Quarter: 2019Q4

REPORT INFORMATION
  Report Type: Spontaneous
  Country: NL (occurrence: NL)
  Receive Date: 20191128
  Receipt Date: 20191128
  Transmission Date: 20200122
  Serious: Yes (Other)
  Sender: FDA-Public Use
  Company Number: NL-ACCORD-162518

PATIENT
  Sex: Male
  Weight: 87 kg

DRUGS (19)
  1. INHIBIN [Concomitant]
     Dosage: N 1T, STRENGTH: 100 MG
  2. MOMETASONE [Concomitant]
     Active Substance: MOMETASONE
     Dosage: 1S2BN, 50UG / TH
  3. CLONAZEPAM. [Concomitant]
     Active Substance: CLONAZEPAM
     Dosage: 1Z1T, STRENGTH:0.5MG
  4. LANTUS [Concomitant]
     Active Substance: INSULIN GLARGINE
     Dosage: 100E / ML CARTRIDGE 3ML, VV
  5. COLECALCIFEROL [Concomitant]
     Active Substance: CHOLECALCIFEROL
     Dosage: 1W1C, 5600IE
  6. XARELTO [Concomitant]
     Active Substance: RIVAROXABAN
     Dosage: 1.1T, STRENGTH: 15MG
  7. CANDESARTAN. [Concomitant]
     Active Substance: CANDESARTAN
     Dosage: 1.1T, STRENGTH: 8 MG
  8. LEVOTHYROXINE. [Concomitant]
     Active Substance: LEVOTHYROXINE
     Dosage: 25 UG, 1.1T
  9. PARACETAMOL/TRAMADOL [Concomitant]
     Active Substance: ACETAMINOPHEN\TRAMADOL
     Dosage: 1.1T, 37.5/325 MG
  10. CALCIUM PANTOTHENATE/CYANOCOBALAMIN/FOLIC ACID/NICOTINAMIDE/PYRIDOXINE HYDROCHLORIDE/RIBOFLAVIN/THIA [Concomitant]
     Dosage: 1.1T
  11. SPIRONOLACTONE. [Suspect]
     Active Substance: SPIRONOLACTONE
     Indication: CARDIAC FAILURE
     Dosage: STRENGTH: 12.5 MG, 1 TIME DAILY 1
     Dates: start: 20140425, end: 20191101
  12. METOPROLOL. [Concomitant]
     Active Substance: METOPROLOL
     Dosage: 1.1T, MGA 50MG
  13. IRON [Concomitant]
     Active Substance: IRON
     Dosage: 2.1T, STRENGTH: 200MG
  14. METFORMIN [Concomitant]
     Active Substance: METFORMIN HYDROCHLORIDE
     Dosage: 2.1T, STRENGTH: 500MG
  15. ATORVASTATIN [Concomitant]
     Active Substance: ATORVASTATIN
     Dosage: 1.1T, STRENGTH: 40MG
  16. SPIRIVA RESPIMAT [Concomitant]
     Active Substance: TIOTROPIUM BROMIDE
     Dosage: 1.2IH, 2.5MCG / TH PATR 60 TH + INH
  17. PANTOPRAZOLE [Concomitant]
     Active Substance: PANTOPRAZOLE
     Dosage: 2.1T, MSR 40MG
  18. EPLERENONE. [Concomitant]
     Active Substance: EPLERENONE
     Dosage: 1.1T, STRENGTH: 25MG
  19. NITROGLYCERIN. [Concomitant]
     Active Substance: NITROGLYCERIN
     Dosage: VV, SPRAY SUBLING, 0.4 MG / TH

REACTIONS (2)
  - Gynaecomastia [Not Recovered/Not Resolved]
  - Breast cancer [Not Recovered/Not Resolved]
